FAERS Safety Report 7690901-3 (Version None)
Quarter: 2011Q3

REPORT INFORMATION
  Report Type: 
  Country: None (occurrence: None)
  Receive Date: 20110818
  Receipt Date: 20110818
  Transmission Date: 20111222
  Serious: No
  Sender: FDA-Public Use
  Company Number: None

PATIENT
  Age: 21 Year
  Sex: Female
  Weight: 68.038 kg

DRUGS (1)
  1. METRONIDAZOLE [Suspect]
     Indication: BACTERIAL INFECTION
     Dosage: ONE TABLET
     Route: 048
     Dates: start: 20110816, end: 20110817

REACTIONS (7)
  - MATERNAL EXPOSURE DURING PREGNANCY [None]
  - ABDOMINAL DISCOMFORT [None]
  - VOMITING [None]
  - MALAISE [None]
  - NAUSEA [None]
  - ASTHENIA [None]
  - HEADACHE [None]
